FAERS Safety Report 9897851 (Version 6)
Quarter: 2014Q2

REPORT INFORMATION
  Report Type: Spontaneous
  Country: US (occurrence: US)
  Receive Date: 20140214
  Receipt Date: 20140612
  Transmission Date: 20141212
  Serious: No
  Sender: FDA-Public Use
  Company Number: US-PFIZER INC-2014039204

PATIENT
  Age: 53 Year
  Sex: Female
  Weight: 81.63 kg

DRUGS (1)
  1. SUTENT [Suspect]
     Indication: NEOPLASM MALIGNANT
     Dosage: 50 MG, CYCLIC
     Dates: start: 20140120, end: 20140508

REACTIONS (19)
  - Disease progression [Unknown]
  - Neoplasm malignant [Unknown]
  - Decreased appetite [Unknown]
  - Pain in extremity [Recovering/Resolving]
  - Dysgeusia [Unknown]
  - Depressed mood [Unknown]
  - Malaise [Unknown]
  - Hypertension [Not Recovered/Not Resolved]
  - Epistaxis [Unknown]
  - Headache [Unknown]
  - Nasal congestion [Unknown]
  - Respiratory tract congestion [Unknown]
  - Pyrexia [Unknown]
  - Peripheral swelling [Unknown]
  - Burning sensation [Unknown]
  - Abdominal discomfort [Unknown]
  - Liver disorder [Unknown]
  - Thyroid disorder [Unknown]
  - Blood count abnormal [Unknown]
